FAERS Safety Report 7591104-3 (Version None)
Quarter: 2011Q3

REPORT INFORMATION
  Report Type: 
  Country: None (occurrence: None)
  Receive Date: 20110705
  Receipt Date: 20110623
  Transmission Date: 20111222
  Serious: Yes (Hospitalization)
  Sender: FDA-Public Use
  Company Number: ES-ASTRAZENECA-2011SE38590

PATIENT
  Sex: Female

DRUGS (1)
  1. CRESTOR [Suspect]
     Route: 048
     Dates: end: 20110425

REACTIONS (6)
  - ASTHENIA [None]
  - MALAISE [None]
  - MUSCULAR WEAKNESS [None]
  - FALL [None]
  - MUSCULOSKELETAL STIFFNESS [None]
  - MYALGIA [None]
